FAERS Safety Report 9055793 (Version 1)
Quarter: 2013Q1

REPORT INFORMATION
  Report Type: Spontaneous
  Country: FR (occurrence: FR)
  Receive Date: 20130206
  Receipt Date: 20130206
  Transmission Date: 20140127
  Serious: Yes (Death, Hospitalization)
  Sender: FDA-Public Use
  Company Number: FR-GILEAD-2012-0060285

PATIENT
  Age: 39 None
  Sex: Female

DRUGS (10)
  1. TRUVADA [Suspect]
     Indication: HIV INFECTION
     Dosage: 1 DF, QD
     Route: 048
     Dates: start: 20120113, end: 20120802
  2. INTERLEUKINS [Suspect]
     Indication: PROGRESSIVE MULTIFOCAL LEUKOENCEPHALOPATHY
     Dosage: 1200 ?G, Q1WK
     Route: 058
     Dates: start: 20120621, end: 20120705
  3. NORVIR [Suspect]
     Indication: HIV INFECTION
     Dosage: 100 MG, QD
     Route: 048
     Dates: start: 20120113, end: 20120802
  4. PREZISTA [Suspect]
     Indication: HIV INFECTION
     Dosage: 400 MG, QD
     Route: 048
     Dates: start: 20120113, end: 20120802
  5. INTELENCE [Suspect]
     Indication: HIV INFECTION
     Dosage: 4 DF, QD
     Route: 048
     Dates: start: 20120113, end: 20120802
  6. COUMADINE [Concomitant]
     Dosage: 30 UNK, UNK
  7. CRESTOR [Concomitant]
  8. WELLVONE [Concomitant]
  9. ODRIK [Concomitant]
  10. DIFFU K [Concomitant]

REACTIONS (2)
  - Disease progression [Fatal]
  - Immune reconstitution inflammatory syndrome [Fatal]
